FAERS Safety Report 25059898 (Version 1)
Quarter: 2025Q1

REPORT INFORMATION
  Report Type: Spontaneous
  Country: US (occurrence: US)
  Receive Date: 20250310
  Receipt Date: 20250310
  Transmission Date: 20250409
  Serious: No
  Sender: MYLAN
  Company Number: US-MYLANLABS-2025M1017655

PATIENT
  Age: 63 Year
  Sex: Female

DRUGS (3)
  1. LATANOPROST [Suspect]
     Active Substance: LATANOPROST
     Indication: Glaucoma
     Dosage: 50 MICROGRAM PER MILLILITER, QD (ONCE A DAY)
  2. LATANOPROST [Suspect]
     Active Substance: LATANOPROST
     Dosage: 50 MICROGRAM PER MILLILITER, QD (ONCE A DAY)
  3. LATANOPROST [Suspect]
     Active Substance: LATANOPROST
     Dosage: 50 MICROGRAM PER MILLILITER, QD (ONCE A DAY)

REACTIONS (3)
  - Product storage error [Unknown]
  - Product packaging quantity issue [Unknown]
  - Product container seal issue [Unknown]

NARRATIVE: CASE EVENT DATE: 20250226
